FAERS Safety Report 22374871 (Version 2)
Quarter: 2023Q4

REPORT INFORMATION
  Report Type: Spontaneous
  Country: CA (occurrence: CA)
  Receive Date: 20230527
  Receipt Date: 20231215
  Transmission Date: 20240110
  Serious: Yes (Other)
  Sender: FDA-Public Use
  Company Number: CA-CELLTRION INC.-2021CA012657

PATIENT

DRUGS (18)
  1. INFLECTRA [Suspect]
     Active Substance: INFLIXIMAB-DYYB
     Indication: Ankylosing spondylitis
     Dosage: 250 MG (3 MG/KG), (INDUCTION DOSES AT WEEK 0, 2 AND 6, THEN EVERY 8 WEEK)
     Route: 042
     Dates: start: 20210730
  2. INFLECTRA [Suspect]
     Active Substance: INFLIXIMAB-DYYB
     Dosage: 3 MG/KG, (INDUCTION DOSES AT WEEK 0, 2 AND 6, THEN EVERY 8 WEEKS)
     Route: 042
     Dates: start: 20210813
  3. INFLECTRA [Suspect]
     Active Substance: INFLIXIMAB-DYYB
     Dosage: 3 MG/KG, (INDUCTION DOSES AT WEEK 0, 2 AND 6, THEN EVERY 8 WEEK)
     Route: 042
     Dates: start: 20210909
  4. INFLECTRA [Suspect]
     Active Substance: INFLIXIMAB-DYYB
     Dosage: 3 MG/KG, (INDUCTION DOSES AT WEEK 0, 2 AND 6, THEN EVERY 8 WEEK)
     Route: 042
     Dates: start: 20211105
  5. INFLECTRA [Suspect]
     Active Substance: INFLIXIMAB-DYYB
     Dosage: 428 MG, EVERY 8 WEEKS
     Route: 042
     Dates: start: 20211231
  6. INFLECTRA [Suspect]
     Active Substance: INFLIXIMAB-DYYB
     Dosage: 425 MG EVERY 8 WEEKS
     Route: 042
     Dates: start: 20220223
  7. INFLECTRA [Suspect]
     Active Substance: INFLIXIMAB-DYYB
     Dosage: 425 MG EVERY 8 WEEKS
     Route: 042
     Dates: start: 20220421
  8. INFLECTRA [Suspect]
     Active Substance: INFLIXIMAB-DYYB
     Dosage: 425 MG EVERY 8 WEEKS
     Route: 042
     Dates: start: 20220617
  9. INFLECTRA [Suspect]
     Active Substance: INFLIXIMAB-DYYB
     Dosage: 425 MG EVERY 8 WEEKS
     Route: 042
     Dates: start: 20220811
  10. INFLECTRA [Suspect]
     Active Substance: INFLIXIMAB-DYYB
     Dosage: 425 MG EVERY 8 WEEKS
     Route: 042
     Dates: start: 20221006
  11. INFLECTRA [Suspect]
     Active Substance: INFLIXIMAB-DYYB
     Dosage: 425 MG EVERY 8 WEEKS
     Route: 042
     Dates: start: 20221202
  12. INFLECTRA [Suspect]
     Active Substance: INFLIXIMAB-DYYB
     Dosage: 425 MG EVERY 8 WEEKS
     Dates: start: 20230323
  13. INFLECTRA [Suspect]
     Active Substance: INFLIXIMAB-DYYB
     Dosage: 425 MG EVERY 8 WEEKS
     Route: 042
     Dates: start: 20230519
  14. INFLECTRA [Suspect]
     Active Substance: INFLIXIMAB-DYYB
     Dosage: 425 MG EVERY 8 WEEKS
     Route: 042
     Dates: start: 20230714
  15. INFLECTRA [Suspect]
     Active Substance: INFLIXIMAB-DYYB
     Dosage: 450 MG,EVERY  6 WEEKS
     Route: 042
     Dates: start: 20230908
  16. INFLECTRA [Suspect]
     Active Substance: INFLIXIMAB-DYYB
     Dosage: 450 MG,EVERY  6 WEEKS
     Route: 042
     Dates: start: 20231020
  17. CYMBALTA [Concomitant]
     Active Substance: DULOXETINE HYDROCHLORIDE
     Dosage: 1 DF
     Route: 065
  18. TYLENOL ARTHRITIS PAIN [Concomitant]
     Active Substance: ACETAMINOPHEN
     Dosage: 1 DF
     Route: 065

REACTIONS (11)
  - Drug ineffective [Not Recovered/Not Resolved]
  - Condition aggravated [Not Recovered/Not Resolved]
  - Fatigue [Recovered/Resolved]
  - Arthralgia [Not Recovered/Not Resolved]
  - Cough [Not Recovered/Not Resolved]
  - Headache [Unknown]
  - Oropharyngeal pain [Not Recovered/Not Resolved]
  - COVID-19 [Recovered/Resolved]
  - Arthropod bite [Not Recovered/Not Resolved]
  - COVID-19 [Recovered/Resolved with Sequelae]
  - Off label use [Unknown]

NARRATIVE: CASE EVENT DATE: 20210730
